FAERS Safety Report 12729902 (Version 1)
Quarter: 2016Q3

REPORT INFORMATION
  Report Type: Report from Study
  Country: US (occurrence: US)
  Receive Date: 20160909
  Receipt Date: 20160909
  Transmission Date: 20161109
  Serious: Yes (Death, Other)
  Sender: FDA-Public Use
  Company Number: US-ASTRAZENECA-2016SE05052

PATIENT
  Sex: Female

DRUGS (1)
  1. TAGRISSO [Suspect]
     Active Substance: OSIMERTINIB
     Indication: MALIGNANT RESPIRATORY TRACT NEOPLASM
     Route: 048
     Dates: start: 20160106

REACTIONS (9)
  - Diarrhoea [Unknown]
  - Pruritus [Unknown]
  - Rash [Unknown]
  - Red blood cell count decreased [Not Recovered/Not Resolved]
  - Gallbladder disorder [Unknown]
  - Hepatic function abnormal [Unknown]
  - Death [Fatal]
  - Skin discolouration [Unknown]
  - Renal disorder [Unknown]
